FAERS Safety Report 20127720 (Version 1)
Quarter: 2021Q4

REPORT INFORMATION
  Report Type: Report from Study
  Country: CO (occurrence: CO)
  Receive Date: 20211129
  Receipt Date: 20211129
  Transmission Date: 20220303
  Serious: Yes (Other)
  Sender: FDA-Public Use
  Company Number: CO-002147023-NVSC2021CO266128

PATIENT

DRUGS (1)
  1. RUXOLITINIB [Suspect]
     Active Substance: RUXOLITINIB
     Indication: Polycythaemia vera
     Dosage: 10 MG, QD
     Route: 048

REACTIONS (5)
  - Deafness [Unknown]
  - Blood test abnormal [Unknown]
  - Platelet count increased [Unknown]
  - Incorrect dose administered [Unknown]
  - Anxiety [Unknown]
